FAERS Safety Report 23883000 (Version 1)
Quarter: 2024Q2

REPORT INFORMATION
  Report Type: Spontaneous
  Country: ES (occurrence: ES)
  Receive Date: 20240522
  Receipt Date: 20240522
  Transmission Date: 20240717
  Serious: Yes (Hospitalization, Other)
  Sender: FDA-Public Use
  Company Number: None

PATIENT

DRUGS (13)
  1. MOMELOTINIB DIHYDROCHLORIDE [Suspect]
     Active Substance: MOMELOTINIB DIHYDROCHLORIDE
     Indication: Myelofibrosis
     Dosage: 200 MG, QD
     Route: 048
     Dates: start: 20240418, end: 20240426
  2. ERYTHROPOIETIN [Concomitant]
     Active Substance: ERYTHROPOIETIN
     Indication: Product used for unknown indication
     Dosage: 40000 IU ;FREQUENCY 15 DAY. STRENGTH:40,000 IU/1 ML; 1 PRE-FILLED SYRINGE OF 1 ML
     Route: 058
     Dates: start: 20240315
  3. FEBUXOSTAT [Concomitant]
     Active Substance: FEBUXOSTAT
     Indication: Gout
     Dosage: 120 MG, QD; 28 TABLETS
     Route: 048
     Dates: start: 20200930
  4. THIAMINE HYDROCHLORIDE [Concomitant]
     Active Substance: THIAMINE HYDROCHLORIDE
     Indication: Product used for unknown indication
     Dosage: 300 MG, QD; 20 TABLETS
     Route: 048
     Dates: start: 20230517
  5. CALCIFEDIOL [Concomitant]
     Active Substance: CALCIFEDIOL
     Indication: Product used for unknown indication
     Dosage: 0.26 MG; FREQUENCY 15 DAYS.10 CAPSULES (PVC/PVDC-ALUMINUM BLISTER)
     Route: 048
     Dates: start: 20240301
  6. MORPHINE SULFATE [Concomitant]
     Active Substance: MORPHINE SULFATE
     Indication: Product used for unknown indication
     Dosage: 5 MG, QID; 60 TABLETS
     Route: 048
     Dates: start: 20240405
  7. LORMETAZEPAM [Concomitant]
     Active Substance: LORMETAZEPAM
     Indication: Product used for unknown indication
     Dosage: 1 MG, QD, TABLETB(PFT); 30 TABLETS
     Route: 048
     Dates: start: 20180727
  8. HYDREA [Concomitant]
     Active Substance: HYDROXYUREA
     Indication: Product used for unknown indication
     Dosage: 500 MG, QD, CAPSULE ,HARD(PDF),20 CAPSULES
     Route: 048
     Dates: start: 20231219
  9. OMEPRAZOLE [Concomitant]
     Active Substance: DONEPEZIL HYDROCHLORIDE\OMEPRAZOLE\OMEPRAZOLE MAGNESIUM
     Indication: Product used for unknown indication
     Dosage: 20 MG, QD; GASTRO-RESISTANT CAPSULE, HARD (PDF);28 CAPSULES
     Route: 048
     Dates: start: 20210604
  10. ZALDIAR [Concomitant]
     Active Substance: ACETAMINOPHEN\TRAMADOL HYDROCHLORIDE
     Indication: Product used for unknown indication
     Dosage: 1 DF, TID, STRENGTH:37.5 MG/325 MG; 60 TABLETS
     Route: 048
     Dates: start: 20240314
  11. Nolotil [Concomitant]
     Indication: Product used for unknown indication
     Dosage: 575 MG, TID; 20 CAPSULES
     Route: 048
     Dates: start: 20240301
  12. Seropram [Concomitant]
     Indication: Product used for unknown indication
     Dosage: 30 MG, QD; 28 TABLETS
     Route: 048
     Dates: start: 20180727
  13. FENTANYL TRANSDERMAL SYSTEM [Concomitant]
     Active Substance: FENTANYL
     Indication: Product used for unknown indication
     Dosage: 25 UG, Q3D; 25 MICROGRAMS /H EFG TRANSDERMAL PATCHES, 5 PATCHES
     Route: 062
     Dates: start: 20240419

REACTIONS (1)
  - Renal failure [Recovered/Resolved with Sequelae]

NARRATIVE: CASE EVENT DATE: 20240426
